FAERS Safety Report 6066048-9 (Version None)
Quarter: 2009Q1

REPORT INFORMATION
  Report Type: 
  Country: None (occurrence: None)
  Receive Date: 20090205
  Receipt Date: 20090126
  Transmission Date: 20090719
  Serious: Yes (Other)
  Sender: FDA-Public Use
  Company Number: CA-AMGEN-KDL329774

PATIENT
  Sex: Female

DRUGS (3)
  1. ENBREL [Suspect]
     Indication: RHEUMATOID ARTHRITIS
     Dates: end: 20080101
  2. ENBREL [Suspect]
     Indication: PSORIASIS
  3. CHLOROQUINE PHOSPHATE [Suspect]
     Dates: end: 20080101

REACTIONS (2)
  - GUILLAIN-BARRE SYNDROME [None]
  - RHEUMATOID ARTHRITIS [None]
